FAERS Safety Report 10186960 (Version 1)
Quarter: 2014Q2

REPORT INFORMATION
  Report Type: Spontaneous
  Country: US (occurrence: US)
  Receive Date: 20140522
  Receipt Date: 20140522
  Transmission Date: 20141212
  Serious: Yes (Other)
  Sender: FDA-Public Use
  Company Number: US-BIOGENIDEC-2014BI047024

PATIENT
  Age: 72 Year
  Sex: Male

DRUGS (4)
  1. AVONEX [Suspect]
     Indication: MULTIPLE SCLEROSIS
     Route: 030
     Dates: start: 20110321
  2. VITAMIN B COMPLEX [Concomitant]
  3. ASPIRIN [Concomitant]
  4. BACLOFEN [Concomitant]

REACTIONS (1)
  - Cerebrovascular accident [Unknown]
